FAERS Safety Report 16999229 (Version 1)
Quarter: 2019Q4

REPORT INFORMATION
  Report Type: Spontaneous
  Country: US (occurrence: US)
  Receive Date: 20191106
  Receipt Date: 20191106
  Transmission Date: 20200122
  Serious: Yes (Death, Life-Threatening, Hospitalization, Other)
  Sender: FDA-Public Use
  Company Number: US-HIKMA PHARMACEUTICALS USA INC.-US-H14001-19-05557

PATIENT
  Age: 77 Year
  Sex: Male

DRUGS (2)
  1. CYTARABINE. [Suspect]
     Active Substance: CYTARABINE
     Indication: ACUTE MYELOID LEUKAEMIA
     Route: 042
     Dates: start: 20180131
  2. INCB053914 [Suspect]
     Active Substance: INCB-053914
     Indication: ACUTE MYELOID LEUKAEMIA
     Route: 048
     Dates: start: 20180131, end: 20180330

REACTIONS (3)
  - Enterocolitis [Fatal]
  - Bacteraemia [Unknown]
  - Sepsis [Fatal]
